FAERS Safety Report 9028370 (Version 1)
Quarter: 2013Q1

REPORT INFORMATION
  Report Type: Spontaneous
  Country: US (occurrence: US)
  Receive Date: 20130124
  Receipt Date: 20130124
  Transmission Date: 20140127
  Serious: No
  Sender: FDA-Public Use
  Company Number: US-PFIZER INC-2013030701

PATIENT
  Sex: Female

DRUGS (5)
  1. LIPITOR [Suspect]
     Dosage: UNK, TWO TIMES A DAY
  2. LISINOPRIL [Suspect]
     Dosage: 20 MG, DAILY
  3. LISINOPRIL [Suspect]
     Dosage: UNK
  4. GLUCOPHAGE [Suspect]
     Indication: DIABETES MELLITUS
     Dosage: 1000 MG TWO TIMES A DAY
  5. GLUCOPHAGE [Suspect]
     Dosage: UNK

REACTIONS (3)
  - Asthenia [Unknown]
  - Headache [Unknown]
  - Irritability [Unknown]
